FAERS Safety Report 24380744 (Version 5)
Quarter: 2025Q2

REPORT INFORMATION
  Report Type: Report from Study
  Country: US (occurrence: US)
  Receive Date: 20240930
  Receipt Date: 20250508
  Transmission Date: 20250716
  Serious: No
  Sender: AMGEN
  Company Number: US-AMGEN-USASP2024191385

PATIENT
  Age: 63 Year
  Sex: Male

DRUGS (3)
  1. KRYSTEXXA [Suspect]
     Active Substance: PEGLOTICASE
     Indication: Gouty tophus
     Dosage: UNK, Q2WK (EVERY 2 WEEKS)
     Route: 042
     Dates: start: 20240924
  2. KRYSTEXXA [Suspect]
     Active Substance: PEGLOTICASE
     Dosage: UNK, Q2WK (EVERY 2 WEEKS)
     Route: 040
     Dates: start: 20241022
  3. KRYSTEXXA [Suspect]
     Active Substance: PEGLOTICASE
     Dosage: UNK UNK, Q2WK (EVERY 2 WEEKS)
     Route: 040
     Dates: start: 20241203

REACTIONS (5)
  - Urine odour abnormal [Unknown]
  - Fatigue [Not Recovered/Not Resolved]
  - Gout [Unknown]
  - Headache [Recovered/Resolved]
  - Electric shock sensation [Unknown]

NARRATIVE: CASE EVENT DATE: 20240901
